FAERS Safety Report 4837705-4 (Version None)
Quarter: 2005Q4

REPORT INFORMATION
  Report Type: 
  Country: None (occurrence: None)
  Receive Date: 20051128
  Receipt Date: 20051117
  Transmission Date: 20060501
  Serious: Yes (Other)
  Sender: FDA-Public Use
  Company Number: GB-MERCK-0511USA03293

PATIENT
  Age: 39 Year
  Sex: Female

DRUGS (2)
  1. PRINIVIL [Suspect]
     Indication: BLOOD PRESSURE INCREASED
     Route: 048
     Dates: start: 20050917
  2. NORIDAY [Concomitant]
     Route: 065

REACTIONS (5)
  - BLOOD PRESSURE INCREASED [None]
  - DIARRHOEA [None]
  - HEADACHE [None]
  - OCULAR HYPERAEMIA [None]
  - VOMITING [None]
